FAERS Safety Report 15627666 (Version 1)
Quarter: 2018Q4

REPORT INFORMATION
  Report Type: Spontaneous
  Country: US (occurrence: US)
  Receive Date: 20181116
  Receipt Date: 20181116
  Transmission Date: 20190205
  Serious: Yes (Other)
  Sender: FDA-Public Use
  Company Number: US-PFIZER INC-2018458556

PATIENT
  Age: 8 Year
  Sex: Female
  Weight: 24.36 kg

DRUGS (1)
  1. GENOTROPIN [Suspect]
     Active Substance: SOMATROPIN
     Indication: ADRENAL INSUFFICIENCY
     Dosage: 1.0 MG, DAILY

REACTIONS (4)
  - Malaise [Unknown]
  - Product dose omission [Unknown]
  - Device battery issue [Unknown]
  - Pharyngitis streptococcal [Unknown]

NARRATIVE: CASE EVENT DATE: 20181103
